FAERS Safety Report 7957541-X (Version None)
Quarter: 2011Q4

REPORT INFORMATION
  Report Type: 
  Country: None (occurrence: None)
  Receive Date: 20111205
  Receipt Date: 20111125
  Transmission Date: 20120403
  Serious: Yes (Hospitalization)
  Sender: FDA-Public Use
  Company Number: FR-GLAXOSMITHKLINE-B0725055A

PATIENT
  Sex: Female

DRUGS (19)
  1. TIENAM [Concomitant]
     Indication: PRODUCT USED FOR UNKNOWN INDICATION
     Route: 042
     Dates: start: 20110217, end: 20110223
  2. CACIT D3 [Concomitant]
  3. VALACYCLOVIR HYDROCHLORIDE [Suspect]
     Indication: PRODUCT USED FOR UNKNOWN INDICATION
     Dosage: 500MG TWICE PER DAY
     Route: 048
     Dates: start: 20110131, end: 20110221
  4. CIPROFLOXACIN [Concomitant]
     Indication: PRODUCT USED FOR UNKNOWN INDICATION
     Dosage: 1000MG PER DAY
     Route: 048
     Dates: start: 20110217, end: 20110222
  5. STABLON [Concomitant]
  6. SPECIAFOLDINE [Concomitant]
     Dosage: 10MG PER DAY
     Dates: start: 20110131
  7. OFLOXACIN [Concomitant]
     Dates: start: 20110213, end: 20110213
  8. LOVENOX [Concomitant]
  9. NEULASTA [Concomitant]
     Route: 042
     Dates: start: 20110212, end: 20110213
  10. GENTAMICIN [Concomitant]
  11. TERCIAN [Concomitant]
     Dates: end: 20110328
  12. CLINDAMYCIN HCL [Concomitant]
     Indication: TOXOPLASMOSIS
     Dosage: 600MG THREE TIMES PER DAY
     Route: 048
     Dates: start: 20110218, end: 20110222
  13. BACTRIM [Concomitant]
     Indication: PRODUCT USED FOR UNKNOWN INDICATION
     Dosage: 1UNIT THREE TIMES PER WEEK
     Route: 048
     Dates: start: 20110131, end: 20110213
  14. TARGOCID [Concomitant]
     Indication: PRODUCT USED FOR UNKNOWN INDICATION
     Dosage: 800MG PER DAY
     Route: 042
     Dates: start: 20110214, end: 20110222
  15. CLADRIBINE [Concomitant]
     Indication: HAIRY CELL LEUKAEMIA
     Dosage: 8.5MG PER DAY
     Route: 058
     Dates: start: 20110207, end: 20110211
  16. ACETAMINOPHEN W/ PROPOXYPHENE HCL [Concomitant]
  17. ZOVIRAX [Concomitant]
     Route: 042
     Dates: start: 20110221, end: 20110227
  18. OMEPRAZOLE [Concomitant]
  19. ROCEPHIN [Concomitant]
     Dates: start: 20110213, end: 20110217

REACTIONS (6)
  - RASH PUSTULAR [None]
  - DRUG RASH WITH EOSINOPHILIA AND SYSTEMIC SYMPTOMS [None]
  - LIVER FUNCTION TEST ABNORMAL [None]
  - DRUG ERUPTION [None]
  - RASH VESICULAR [None]
  - RASH ERYTHEMATOUS [None]
